FAERS Safety Report 4925451-8 (Version None)
Quarter: 2006Q1

REPORT INFORMATION
  Report Type: 
  Country: None (occurrence: None)
  Receive Date: 20060228
  Receipt Date: 20050223
  Transmission Date: 20060701
  Serious: No
  Sender: FDA-Public Use
  Company Number: US-GLAXOSMITHKLINE-A0546928A

PATIENT
  Age: 59 Year
  Sex: Female

DRUGS (7)
  1. LAMICTAL [Suspect]
     Indication: DEPRESSION
     Dosage: 25MG PER DAY
     Route: 048
     Dates: start: 20050124
  2. ATIVAN [Concomitant]
  3. FISH OIL [Concomitant]
  4. CARDURA [Concomitant]
     Route: 065
  5. WELLBUTRIN XL [Concomitant]
  6. ACTOS [Concomitant]
  7. AMARYL [Concomitant]

REACTIONS (1)
  - BLOOD GLUCOSE INCREASED [None]
